FAERS Safety Report 5136358-8 (Version None)
Quarter: 2006Q4

REPORT INFORMATION
  Report Type: 
  Country: None (occurrence: None)
  Receive Date: 20061027
  Receipt Date: 20061017
  Transmission Date: 20070319
  Serious: Yes (Hospitalization)
  Sender: FDA-Public Use
  Company Number: 2006GB01858

PATIENT
  Age: 84 Year
  Sex: Male

DRUGS (3)
  1. QUETIAPINE [Suspect]
     Indication: AGITATION
     Route: 048
     Dates: start: 20060823, end: 20060825
  2. QUETIAPINE [Suspect]
     Indication: INSOMNIA
     Route: 048
     Dates: start: 20060823, end: 20060825
  3. LORAZEPAM [Concomitant]
     Indication: AGITATION
     Route: 048
     Dates: start: 20060823

REACTIONS (6)
  - BLADDER DILATATION [None]
  - BLADDER DISORDER [None]
  - CONDITION AGGRAVATED [None]
  - CONFUSIONAL STATE [None]
  - DEMENTIA [None]
  - URINARY RETENTION [None]
